FAERS Safety Report 5577372-8 (Version None)
Quarter: 2007Q4

REPORT INFORMATION
  Report Type: 
  Country: None (occurrence: None)
  Receive Date: 20071228
  Receipt Date: 20071221
  Transmission Date: 20080405
  Serious: Yes (Other)
  Sender: FDA-Public Use
  Company Number: CA-PFIZER INC-2007107091

PATIENT

DRUGS (1)
  1. VIRACEPT [Suspect]

REACTIONS (1)
  - TORSADE DE POINTES [None]
